FAERS Safety Report 5264942-X (Version None)
Quarter: 2007Q1

REPORT INFORMATION
  Report Type: 
  Country: None (occurrence: None)
  Receive Date: 20061117
  Receipt Date: 20051003
  Transmission Date: 20070707
  Serious: Yes (Hospitalization, Other)
  Sender: FDA-Public Use
  Company Number: US-JNJFOC-20050803872

PATIENT
  Age: 51 Year
  Sex: Female
  Weight: 81.6475 kg

DRUGS (13)
  1. LEVAQUIN [Suspect]
     Indication: POSTOPERATIVE WOUND INFECTION
     Dosage: 500 MG, 2 IN 1 DAY, ORAL
     Route: 048
     Dates: start: 20050729, end: 20050803
  2. PREVACID (LANSOPRAZOLE) TABLETS [Concomitant]
  3. ZOLOFT [Concomitant]
  4. ESTRACE (ESTRADIOL) TABLETS [Concomitant]
  5. ACYCLOVIR (ACICLOVIR) TABLETS [Concomitant]
  6. CRESTOR (CHOLESTEROL- AND TRIGLYCERIDE REDUCERS) TABLETS [Concomitant]
  7. DOXAPIN (DOXEPIN HYDROCHLORIDE) TABLETS [Concomitant]
  8. SINGULAIR [Concomitant]
  9. OXYCONTIN (OXYCODONE HYDROCHLORIDE) TABLETS [Concomitant]
  10. FLEXERIL [Concomitant]
  11. NEURONTIN [Concomitant]
  12. DURAGESIC-100 [Concomitant]
  13. ACTIQ [Concomitant]

REACTIONS (1)
  - ROTATOR CUFF SYNDROME [None]
